FAERS Safety Report 8134462-3 (Version None)
Quarter: 2012Q1

REPORT INFORMATION
  Report Type: 
  Country: None (occurrence: None)
  Receive Date: 20120214
  Receipt Date: 20120214
  Transmission Date: 20120608
  Serious: No
  Sender: FDA-Public Use
  Company Number: None

PATIENT
  Sex: Male
  Weight: 68.038 kg

DRUGS (1)
  1. CIPROFLOXACIN [Suspect]
     Indication: CYSTITIS
     Dosage: 1 TAB
     Route: 048
     Dates: start: 20110925, end: 20111004

REACTIONS (23)
  - CHEST PAIN [None]
  - NEUROPATHY PERIPHERAL [None]
  - IMMUNE SYSTEM DISORDER [None]
  - DIZZINESS [None]
  - ANXIETY [None]
  - WEIGHT DECREASED [None]
  - DISORIENTATION [None]
  - DYSPEPSIA [None]
  - DYSPNOEA [None]
  - DRY EYE [None]
  - HEPATIC FUNCTION ABNORMAL [None]
  - TOXICITY TO VARIOUS AGENTS [None]
  - FATIGUE [None]
  - UNEVALUABLE EVENT [None]
  - PARAESTHESIA [None]
  - URINARY TRACT INFECTION [None]
  - FEAR [None]
  - BACK PAIN [None]
  - DRY MOUTH [None]
  - INSOMNIA [None]
  - VISION BLURRED [None]
  - HYPOAESTHESIA [None]
  - HEADACHE [None]
